FAERS Safety Report 4847634-8 (Version None)
Quarter: 2005Q4

REPORT INFORMATION
  Report Type: 
  Country: None (occurrence: None)
  Receive Date: 20051205
  Receipt Date: 20051121
  Transmission Date: 20060501
  Serious: Yes (Death, Hospitalization)
  Sender: FDA-Public Use
  Company Number: 2005154144

PATIENT
  Age: 78 Year
  Sex: Female

DRUGS (7)
  1. CELEBREX [Suspect]
     Indication: OSTEOARTHRITIS
     Dosage: 100 MG (100 MG, 1 IN 1 D), ORAL
     Route: 048
     Dates: start: 20041102
  2. ASPIRIN [Concomitant]
  3. SELOKEEN (METOPROLOL TARTRATE) [Concomitant]
  4. ISOSORBIDE MONONITRATE [Concomitant]
  5. SURAZEM ^UPJOHN^ (DILTIAZEM HYDROCHLORIDE) [Concomitant]
  6. ZOCOR [Concomitant]
  7. METOPROLOL (METOPROLOL) [Concomitant]

REACTIONS (1)
  - MYOCARDIAL INFARCTION [None]
